FAERS Safety Report 5975208-4 (Version None)
Quarter: 2008Q4

REPORT INFORMATION
  Report Type: 
  Country: None (occurrence: None)
  Receive Date: 20081202
  Receipt Date: 20081022
  Transmission Date: 20090506
  Serious: No
  Sender: FDA-Public Use
  Company Number: US-ABBOTT-08P-163-0483179-00

PATIENT
  Sex: Female
  Weight: 77.18 kg

DRUGS (6)
  1. LUPRON DEPOT [Suspect]
     Indication: ENDOMETRIOSIS
     Route: 030
     Dates: start: 20070806, end: 20080103
  2. TRAZODONE HCL [Concomitant]
     Indication: DRUG USE FOR UNKNOWN INDICATION
     Route: 048
     Dates: start: 20030101
  3. RABEPRAZOLE SODIUM [Concomitant]
     Indication: ENDOMETRIOSIS
     Route: 048
  4. YAZ [Concomitant]
     Indication: ENDOMETRIOSIS
     Route: 048
     Dates: start: 20060101
  5. LOESTRON 24 [Concomitant]
     Indication: PROPHYLAXIS
     Route: 048
     Dates: start: 20081001
  6. LOESTRON 24 [Concomitant]
     Indication: ADVERSE DRUG REACTION

REACTIONS (36)
  - ABDOMINAL DISTENSION [None]
  - ACNE [None]
  - ANXIETY [None]
  - APATHY [None]
  - ASTHENIA [None]
  - BRADYPHRENIA [None]
  - BREAST ENLARGEMENT [None]
  - BREAST TENDERNESS [None]
  - CLUMSINESS [None]
  - COGNITIVE DISORDER [None]
  - CONTUSION [None]
  - DEAFNESS [None]
  - DEPRESSION [None]
  - DISTURBANCE IN SEXUAL AROUSAL [None]
  - DRY SKIN [None]
  - EMOTIONAL DISORDER [None]
  - FATIGUE [None]
  - FEELING ABNORMAL [None]
  - FOOD CRAVING [None]
  - INCREASED APPETITE [None]
  - JOINT SWELLING [None]
  - LIBIDO DECREASED [None]
  - MEMORY IMPAIRMENT [None]
  - MUSCULOSKELETAL CHEST PAIN [None]
  - OEDEMA [None]
  - ONYCHOCLASIS [None]
  - ORGASMIC SENSATION DECREASED [None]
  - PAIN IN EXTREMITY [None]
  - PALPITATIONS [None]
  - PSYCHIATRIC SYMPTOM [None]
  - SLEEP DISORDER [None]
  - SPEECH DISORDER [None]
  - STRESS [None]
  - SWELLING [None]
  - VULVOVAGINAL DRYNESS [None]
  - WEIGHT INCREASED [None]
